FAERS Safety Report 12382734 (Version 1)
Quarter: 2016Q2

REPORT INFORMATION
  Report Type: Spontaneous
  Country: DK (occurrence: DK)
  Receive Date: 20160518
  Receipt Date: 20160518
  Transmission Date: 20160815
  Serious: Yes (Hospitalization)
  Sender: FDA-Public Use
  Company Number: DK-ELI_LILLY_AND_COMPANY-DK201605005201

PATIENT
  Age: 26 Year
  Sex: Male

DRUGS (5)
  1. ZYPREXA [Suspect]
     Active Substance: OLANZAPINE
     Indication: SCHIZOPHRENIA
     Dosage: UNK UNK, UNKNOWN SHIFTING DOSE
     Route: 065
     Dates: start: 20110721, end: 20121102
  2. ZYPREXA [Suspect]
     Active Substance: OLANZAPINE
     Dosage: UNK, UNKNOWN
     Route: 065
     Dates: start: 20111209
  3. ZYPREXA [Suspect]
     Active Substance: OLANZAPINE
     Dosage: UNK, UNKNOWN
     Route: 065
     Dates: end: 20121003
  4. ZYPREXA [Suspect]
     Active Substance: OLANZAPINE
     Dosage: UNK, UNKNOWN
     Route: 065
     Dates: start: 20110919
  5. ZYPREXA [Suspect]
     Active Substance: OLANZAPINE
     Dosage: UNK, UNKNOWN
     Route: 065
     Dates: start: 20121019, end: 20121102

REACTIONS (8)
  - Muscular weakness [Recovering/Resolving]
  - Pollakiuria [Not Recovered/Not Resolved]
  - Hypertonic bladder [Unknown]
  - Urinary tract obstruction [Unknown]
  - Nocturia [Recovering/Resolving]
  - Blood alcohol increased [Unknown]
  - Hunger [Unknown]
  - Stress [Unknown]

NARRATIVE: CASE EVENT DATE: 2011
